FAERS Safety Report 19580791 (Version 1)
Quarter: 2021Q3

REPORT INFORMATION
  Report Type: Spontaneous
  Country: US (occurrence: US)
  Receive Date: 20210719
  Receipt Date: 20210719
  Transmission Date: 20211014
  Serious: Yes (Hospitalization)
  Sender: FDA-Public Use
  Company Number: None

PATIENT
  Age: 87 Year
  Sex: Female

DRUGS (8)
  1. OMEPRAZOLE CAP 40MG [Concomitant]
     Active Substance: OMEPRAZOLE
     Dates: start: 20200717
  2. DILTIAZEM CAP 120MG ER [Concomitant]
     Dates: start: 20210112
  3. PRAVASTATIN TAB 10MG [Concomitant]
     Active Substance: PRAVASTATIN
     Dates: start: 20210127
  4. GABEPENTIN CAP 120MG ER [Concomitant]
     Dates: start: 20210122
  5. NORTRIPTYLIN CAP 10MG [Concomitant]
     Dates: start: 20210127
  6. SILDENAFIL. [Suspect]
     Active Substance: SILDENAFIL
     Indication: HYPERTENSION
     Route: 048
     Dates: start: 20180118
  7. DASVENLAFAX TAB 50MG ER [Concomitant]
     Dates: start: 20210428
  8. MONTELUKAST [Concomitant]
     Active Substance: MONTELUKAST SODIUM
     Dates: start: 20210112

REACTIONS (2)
  - Cardiac disorder [None]
  - Dyspnoea [None]

NARRATIVE: CASE EVENT DATE: 20210701
